FAERS Safety Report 25350834 (Version 1)
Quarter: 2025Q2

REPORT INFORMATION
  Report Type: Spontaneous
  Country: US (occurrence: US)
  Receive Date: 20250523
  Receipt Date: 20250523
  Transmission Date: 20250716
  Serious: Yes (Hospitalization)
  Sender: DR REDDYS
  Company Number: None

PATIENT
  Age: 63 Year
  Sex: Male

DRUGS (3)
  1. FENTANYL [Suspect]
     Active Substance: FENTANYL
     Indication: Product used for unknown indication
  2. DIPHENHYDRAMINE [Suspect]
     Active Substance: DIPHENHYDRAMINE
     Indication: Product used for unknown indication
  3. QUININE [Suspect]
     Active Substance: QUININE
     Indication: Product used for unknown indication

REACTIONS (7)
  - Lethargy [Unknown]
  - Muscle spasms [Unknown]
  - Sinus bradycardia [Unknown]
  - Hypertension [Unknown]
  - Sedation complication [Unknown]
  - Mental status changes [Unknown]
  - Overdose [Unknown]
